FAERS Safety Report 9336757 (Version 2)
Quarter: 2013Q2

REPORT INFORMATION
  Report Type: Spontaneous
  Country: US (occurrence: US)
  Receive Date: 20130607
  Receipt Date: 20130619
  Transmission Date: 20140414
  Serious: No
  Sender: FDA-Public Use
  Company Number: PHEH2013US012224

PATIENT
  Age: 58 Year
  Sex: Female

DRUGS (5)
  1. RECLAST [Suspect]
     Dosage: UNK
     Route: 042
     Dates: start: 20130530
  2. VIT D [Concomitant]
     Dosage: 1000 UNITS
     Route: 048
  3. VITAMIIN C [Concomitant]
     Dosage: 500 MG, UNK
     Route: 048
  4. GLUCOSAMINE CHONDROITIN COMPLEX    /06278301/ [Concomitant]
     Route: 048
  5. ENABLEX [Concomitant]
     Dosage: 15 MG, UNK
     Route: 048

REACTIONS (10)
  - Abasia [Unknown]
  - Sciatica [Unknown]
  - Influenza like illness [Unknown]
  - Pain [Unknown]
  - Arthralgia [Unknown]
  - Back pain [Unknown]
  - Malaise [Unknown]
  - Chills [Unknown]
  - Pyrexia [Unknown]
  - Hyperhidrosis [Unknown]
